FAERS Safety Report 17145458 (Version 1)
Quarter: 2019Q4

REPORT INFORMATION
  Report Type: Spontaneous
  Country: US (occurrence: US)
  Receive Date: 20191211
  Receipt Date: 20191211
  Transmission Date: 20200122
  Serious: Yes (Hospitalization)
  Sender: FDA-Public Use
  Company Number: None

PATIENT
  Sex: Male

DRUGS (3)
  1. TACROLIMUS 5MG/0.5MG/1MG [Suspect]
     Active Substance: TACROLIMUS ANHYDROUS
     Indication: CYSTIC FIBROSIS
     Route: 048
     Dates: start: 20191005
  2. TOBRAMYCIN. [Concomitant]
     Active Substance: TOBRAMYCIN
  3. MYCOPHENOLATE [Suspect]
     Active Substance: MYCOPHENOLIC ACID
     Indication: CYSTIC FIBROSIS
     Route: 048
     Dates: start: 20191005

REACTIONS (1)
  - Post procedural complication [None]
